FAERS Safety Report 4349931-1 (Version None)
Quarter: 2004Q2

REPORT INFORMATION
  Report Type: 
  Country: None (occurrence: None)
  Receive Date: 20040428
  Receipt Date: 20040428
  Transmission Date: 20050107
  Serious: Yes (Hospitalization)
  Sender: FDA-Public Use
  Company Number: None

PATIENT
  Age: 60 Year
  Sex: Male
  Weight: 81.8 kg

DRUGS (6)
  1. IBUPROFEN [Suspect]
     Indication: PAIN IN EXTREMITY
     Dosage: 400 MG TID PRN
     Dates: start: 20030826, end: 20040217
  2. FLUOXETINE HCL [Concomitant]
  3. RABEPRAZOLE NA [Concomitant]
  4. BENZTROPINE MESYLATE [Concomitant]
  5. OLANZAPINE [Concomitant]
  6. RISPERIDONE [Concomitant]

REACTIONS (4)
  - ABDOMINAL PAIN UPPER [None]
  - GASTROINTESTINAL HAEMORRHAGE [None]
  - OESOPHAGEAL ULCER [None]
  - REFLUX OESOPHAGITIS [None]
